FAERS Safety Report 5471021-5 (Version None)
Quarter: 2007Q3

REPORT INFORMATION
  Report Type: 
  Country: None (occurrence: None)
  Receive Date: 20070928
  Receipt Date: 20070921
  Transmission Date: 20080115
  Serious: Yes (Hospitalization)
  Sender: FDA-Public Use
  Company Number: B0486344A

PATIENT
  Age: 51 Year
  Sex: Male
  Weight: 56 kg

DRUGS (10)
  1. PAXIL [Suspect]
     Indication: DEPRESSION
     Dosage: 20MG PER DAY
     Route: 048
     Dates: start: 20070711, end: 20070717
  2. TEGRETOL [Concomitant]
     Indication: CONVULSION
     Dosage: 400MG PER DAY
     Route: 048
     Dates: start: 20031229
  3. CEREKINON [Concomitant]
     Indication: GASTRITIS
     Dosage: 900MG PER DAY
     Route: 048
     Dates: start: 20070711, end: 20070821
  4. CETRAXATE HYDROCHLORIDE [Concomitant]
     Indication: GASTRITIS
     Dosage: 1.5G PER DAY
     Route: 048
     Dates: start: 20020408
  5. ENTERONON-R [Concomitant]
     Route: 048
  6. DIAZEPAM [Concomitant]
     Indication: NEUROSIS
     Dosage: 8MG PER DAY
     Route: 048
     Dates: start: 19730629
  7. DEPAS [Concomitant]
     Indication: NEUROSIS
     Dosage: 3MG PER DAY
     Route: 048
     Dates: start: 19730629
  8. INDERAL [Concomitant]
     Dosage: 20MG PER DAY
     Route: 048
  9. NIFLAN [Concomitant]
     Indication: CONJUNCTIVITIS
     Route: 031
     Dates: start: 20070709
  10. TRIMEBUTINE MALEATE [Concomitant]
     Dates: start: 20070808

REACTIONS (5)
  - BLOOD ANTIDIURETIC HORMONE DECREASED [None]
  - BLOOD SODIUM DECREASED [None]
  - INAPPROPRIATE ANTIDIURETIC HORMONE SECRETION [None]
  - NAUSEA [None]
  - URINE SODIUM [None]
